FAERS Safety Report 5045967-6 (Version None)
Quarter: 2006Q3

REPORT INFORMATION
  Report Type: 
  Country: None (occurrence: None)
  Receive Date: 20060710
  Receipt Date: 20060525
  Transmission Date: 20061208
  Serious: Yes (Hospitalization, Other)
  Sender: FDA-Public Use
  Company Number: GB-AVENTIS-200612977EU

PATIENT
  Sex: Female

DRUGS (3)
  1. FUROSEMIDE [Suspect]
     Indication: DIURETIC THERAPY
     Dosage: DOSE: UNKNOWN DOSE
     Route: 048
  2. FUROSEMIDE [Suspect]
     Indication: WEIGHT CONTROL
     Dosage: DOSE: UNKNOWN DOSE
     Route: 048
  3. LAXATIVES [Concomitant]

REACTIONS (2)
  - DRUG ABUSER [None]
  - RENAL FAILURE [None]
